FAERS Safety Report 5327460-6 (Version None)
Quarter: 2007Q2

REPORT INFORMATION
  Report Type: 
  Country: None (occurrence: None)
  Receive Date: 20070517
  Receipt Date: 20070129
  Transmission Date: 20071010
  Serious: Yes (Hospitalization)
  Sender: FDA-Public Use
  Company Number: US-JNJFOC-20070104390

PATIENT
  Age: 57 Year
  Sex: Female

DRUGS (3)
  1. TRAMADOL HCL [Suspect]
     Indication: PAIN
     Route: 048
  2. TRAMADOL HCL [Suspect]
     Indication: DRUG ABUSER
     Route: 048
  3. OTHER TYPE OF SKELETAL MUSCLE RELAXANT [Suspect]
     Indication: PAIN
     Route: 065

REACTIONS (4)
  - ATRIOVENTRICULAR BLOCK FIRST DEGREE [None]
  - INTENTIONAL DRUG MISUSE [None]
  - MENTAL STATUS CHANGES [None]
  - SOMNOLENCE [None]
